FAERS Safety Report 24925403 (Version 1)
Quarter: 2025Q1

REPORT INFORMATION
  Report Type: Report from Study
  Country: US (occurrence: US)
  Receive Date: 20250204
  Receipt Date: 20250204
  Transmission Date: 20250408
  Serious: No
  Sender: EXELIXIS
  Company Number: US-EXELIXIS-CABO-24076888

PATIENT
  Sex: Female
  Weight: 88.435 kg

DRUGS (1)
  1. CABOMETYX [Suspect]
     Active Substance: CABOZANTINIB S-MALATE
     Indication: Metastasis
     Dosage: 40 MG, QD
     Route: 048

REACTIONS (5)
  - Skin disorder [Unknown]
  - Malaise [Unknown]
  - Pain in extremity [Unknown]
  - Dizziness [Unknown]
  - Off label use [Unknown]
